FAERS Safety Report 6045598-5 (Version None)
Quarter: 2009Q1

REPORT INFORMATION
  Report Type: 
  Country: None (occurrence: None)
  Receive Date: 20090121
  Receipt Date: 20090112
  Transmission Date: 20090719
  Serious: Yes (Other)
  Sender: FDA-Public Use
  Company Number: CA-JNJFOC-20090102288

PATIENT
  Sex: Female
  Weight: 63.2 kg

DRUGS (3)
  1. REMICADE [Suspect]
     Indication: CROHN'S DISEASE
     Dosage: 27 INFUSIONS
     Route: 042
  2. BENADRYL [Concomitant]
     Indication: PREMEDICATION
     Route: 048
  3. PREDNISONE [Concomitant]
     Indication: PREMEDICATION
     Route: 048

REACTIONS (1)
  - NEOPLASM MALIGNANT [None]
